FAERS Safety Report 6122165-6 (Version None)
Quarter: 2009Q1

REPORT INFORMATION
  Report Type: 
  Country: None (occurrence: None)
  Receive Date: 20090318
  Receipt Date: 20090313
  Transmission Date: 20090719
  Serious: Yes (Death, Other)
  Sender: FDA-Public Use
  Company Number: PHHY2009US09470

PATIENT

DRUGS (13)
  1. SIMULECT [Suspect]
     Indication: HEART TRANSPLANT
  2. SIMULECT [Suspect]
     Indication: TRANSPLANT REJECTION
  3. THYMOGLOBULIN [Suspect]
     Indication: IMMUNOSUPPRESSION
  4. METHYLPREDNISOLONE 4MG TAB [Suspect]
     Indication: IMMUNOSUPPRESSION
  5. TACROLIMUS [Suspect]
     Indication: IMMUNOSUPPRESSION
     Dosage: 3 MG/DAY
  6. TACROLIMUS [Suspect]
     Dosage: 2 MG/DAY
  7. MYCOPHENOLATE MOFETIL [Suspect]
     Indication: IMMUNOSUPPRESSION
     Dosage: 1.5 G, BID
  8. MYCOPHENOLATE MOFETIL [Suspect]
     Dosage: 1 G, BID
  9. MYCOPHENOLATE MOFETIL [Suspect]
     Dosage: 0.75 G, BID
  10. PLASMAPHERESIS [Concomitant]
     Indication: TRANSPLANT REJECTION
  11. PREDNISOLONE [Concomitant]
     Indication: IMMUNOSUPPRESSION
     Dosage: 30 MG, BID
  12. PREDNISOLONE [Concomitant]
     Dosage: 20 MG/DAY
  13. PREDNISOLONE [Concomitant]
     Dosage: 15 MG/DAY

REACTIONS (13)
  - ASPERGILLOSIS [None]
  - BACTERAEMIA [None]
  - BRAIN ABSCESS [None]
  - CENTRAL NERVOUS SYSTEM NECROSIS [None]
  - CHORIORETINITIS [None]
  - ENCEPHALITIS [None]
  - HAEMORRHAGE [None]
  - LETHARGY [None]
  - LUNG NEOPLASM [None]
  - PYREXIA [None]
  - RESPIRATORY FAILURE [None]
  - URINARY TRACT INFECTION [None]
  - WOUND INFECTION [None]
